FAERS Safety Report 7777505-9 (Version None)
Quarter: 2011Q3

REPORT INFORMATION
  Report Type: 
  Country: None (occurrence: None)
  Receive Date: 20110926
  Receipt Date: 20110914
  Transmission Date: 20111222
  Serious: Yes (Other)
  Sender: FDA-Public Use
  Company Number: US-BAYER-2011-086867

PATIENT
  Age: 63 Year
  Sex: Female
  Weight: 53 kg

DRUGS (8)
  1. CALCIUM CARBONATE [Concomitant]
  2. MULTI-VITAMIN [Concomitant]
  3. XANAX [Concomitant]
  4. ASPIRIN [Suspect]
     Indication: ANALGESIC THERAPY
     Dosage: BOTTLE COUNT: UNSPECIFIED
     Route: 048
  5. ASPIRIN [Suspect]
     Indication: ISCHAEMIC HEART DISEASE PROPHYLAXIS
     Dosage: BOTTLE COUNT 200S
     Route: 048
     Dates: start: 20110601, end: 20110913
  6. ZOLOFT [Concomitant]
  7. FISH OIL [Concomitant]
  8. OMEPRAZOLE [Concomitant]

REACTIONS (1)
  - DEAFNESS [None]
